FAERS Safety Report 6421500-9 (Version None)
Quarter: 2009Q4

REPORT INFORMATION
  Report Type: 
  Country: None (occurrence: None)
  Receive Date: 20091030
  Receipt Date: 20090814
  Transmission Date: 20100525
  Serious: No
  Sender: FDA-Public Use
  Company Number: US-BAYER-200930516NA

PATIENT
  Age: 37 Year
  Sex: Male
  Weight: 112 kg

DRUGS (5)
  1. ULTRAVIST 370 [Suspect]
     Indication: COMPUTERISED TOMOGRAM ABDOMEN
     Dosage: TOTAL DAILY DOSE: 120 ML  UNIT DOSE: 500 ML
     Route: 042
     Dates: start: 20090814, end: 20090814
  2. DIOVAN [Concomitant]
  3. ALLOPURINOL [Concomitant]
  4. TRILIPIX [Concomitant]
  5. ORAL CONTRAST [Concomitant]
     Indication: COMPUTERISED TOMOGRAM ABDOMEN
     Route: 048
     Dates: start: 20090814, end: 20090814

REACTIONS (2)
  - NASAL CONGESTION [None]
  - VOMITING [None]
